FAERS Safety Report 22168461 (Version 1)
Quarter: 2023Q2

REPORT INFORMATION
  Report Type: Spontaneous
  Country: US (occurrence: US)
  Receive Date: 20230403
  Receipt Date: 20230403
  Transmission Date: 20230721
  Serious: Yes (Other)
  Sender: FDA-Public Use
  Company Number: US-AMERICAN REGENT INC-2023000788

PATIENT
  Age: 16 Year
  Sex: Male
  Weight: 88 kg

DRUGS (50)
  1. DEXMEDETOMIDINE HYDROCHLORIDE [Suspect]
     Active Substance: DEXMEDETOMIDINE HYDROCHLORIDE
     Indication: Maintenance of anaesthesia
     Dosage: INTERMITTENT BOLUSES, TOTALING 32 MCG (FOR EMBOLIZATION FOR THE RECURRENT ANGIOFIBROMA)
  2. DEXMEDETOMIDINE HYDROCHLORIDE [Suspect]
     Active Substance: DEXMEDETOMIDINE HYDROCHLORIDE
     Dosage: 2ND HOUR: 0.3 MCG/KG/H
     Route: 042
  3. DEXMEDETOMIDINE HYDROCHLORIDE [Suspect]
     Active Substance: DEXMEDETOMIDINE HYDROCHLORIDE
     Dosage: 3RD HOUR: 0.3 MCG/KG/H
     Route: 042
  4. DEXMEDETOMIDINE HYDROCHLORIDE [Suspect]
     Active Substance: DEXMEDETOMIDINE HYDROCHLORIDE
     Dosage: 4TH HOUR: 0.2 MCG/KG/H (INTRA-OPERATIVE TOTAL: 56.32 MCG)
     Route: 042
  5. SEVOFLURANE [Suspect]
     Active Substance: SEVOFLURANE
     Indication: Maintenance of anaesthesia
     Dosage: UNK, MAINTENANCE (FOR EMBOLIZATION FOR THE RECURRENT ANGIOFIBROMA)
     Route: 065
  6. SEVOFLURANE [Suspect]
     Active Substance: SEVOFLURANE
     Dosage: 1ST HOUR: 0.2-0.6 (MAC)
  7. SEVOFLURANE [Suspect]
     Active Substance: SEVOFLURANE
     Dosage: 2ND HOUR: 0.4-0.5 (MAC)
  8. SEVOFLURANE [Suspect]
     Active Substance: SEVOFLURANE
     Dosage: 3RD HOUR: 0.2-0.3 (MAC)
  9. SEVOFLURANE [Suspect]
     Active Substance: SEVOFLURANE
     Dosage: 4TH HOUR: 0.1 (MAC)
  10. SEVOFLURANE [Suspect]
     Active Substance: SEVOFLURANE
     Dosage: 5TH HOUR: 0.3-0.5 (MAC)
  11. SEVOFLURANE [Suspect]
     Active Substance: SEVOFLURANE
     Dosage: 6TH HOUR: 0.5-0.6 (MAC)
  12. SEVOFLURANE [Suspect]
     Active Substance: SEVOFLURANE
     Dosage: 7TH HOUR: 0.6-0.8 (MAC)
  13. SEVOFLURANE [Suspect]
     Active Substance: SEVOFLURANE
     Dosage: 8TH HOUR: 0.2-0.7 (MAC)
  14. PROPOFOL [Suspect]
     Active Substance: PROPOFOL
     Indication: Induction of anaesthesia
     Dosage: INDUCTION FOR EMBOLIZATION FOR THE RECURRENT ANGIOFIBROMA
     Route: 042
  15. PROPOFOL [Suspect]
     Active Substance: PROPOFOL
     Dosage: INDUCTION FOR ENDOSCOPIC NASAL RESECTION: 200 MG
     Route: 042
  16. PROPOFOL [Suspect]
     Active Substance: PROPOFOL
     Dosage: 1ST HOUR: 100 MG
     Route: 042
  17. PROPOFOL [Suspect]
     Active Substance: PROPOFOL
     Dosage: 1ST HOUR: 150-175 MCG/KG/MIN
     Route: 042
  18. PROPOFOL [Suspect]
     Active Substance: PROPOFOL
     Dosage: 2ND HOUR: 150-175 MCG/KG/MIN
     Route: 042
  19. PROPOFOL [Suspect]
     Active Substance: PROPOFOL
     Dosage: 3RD HOUR: 150 MCG/KG/MIN
     Route: 042
  20. PROPOFOL [Suspect]
     Active Substance: PROPOFOL
     Dosage: 4TH HOUR: 150 MCG/KG/MIN
     Route: 042
  21. PROPOFOL [Suspect]
     Active Substance: PROPOFOL
     Dosage: 5TH HOUR: 150 MCG/KG/MIN
     Route: 042
  22. PROPOFOL [Suspect]
     Active Substance: PROPOFOL
     Dosage: 6TH HOUR: 80-150 MCG/KG/MIN
     Route: 042
  23. PROPOFOL [Suspect]
     Active Substance: PROPOFOL
     Dosage: 7TH HOUR: 80 MCG/KG/MIN
     Route: 042
  24. REMIFENTANIL [Suspect]
     Active Substance: REMIFENTANIL
     Indication: Maintenance of anaesthesia
     Dosage: INDUCTION: 0.2 MC/KG/H
     Route: 042
  25. REMIFENTANIL [Suspect]
     Active Substance: REMIFENTANIL
     Indication: Induction of anaesthesia
     Dosage: 1ST HOUR: 0.25-0.3 MC/KG/H
     Route: 042
  26. REMIFENTANIL [Suspect]
     Active Substance: REMIFENTANIL
     Dosage: 2ND HOUR: 0.3 MC/KG/H
     Route: 042
  27. REMIFENTANIL [Suspect]
     Active Substance: REMIFENTANIL
     Dosage: 3RD HOUR: 0.3 MC/KG/H
     Route: 042
  28. REMIFENTANIL [Suspect]
     Active Substance: REMIFENTANIL
     Dosage: 4TH HOUR: 0.3 MC/KG/H
     Route: 042
  29. REMIFENTANIL [Suspect]
     Active Substance: REMIFENTANIL
     Dosage: 5TH HOUR: 0.3 MC/KG/H
     Route: 042
  30. REMIFENTANIL [Suspect]
     Active Substance: REMIFENTANIL
     Dosage: 6TH HOUR: 0.3 MC/KG/H
     Route: 042
  31. REMIFENTANIL [Suspect]
     Active Substance: REMIFENTANIL
     Dosage: 7TH HOUR: 0.3 MC/KG/H (INTRA-OPERATIVE TOTAL: 10.3 MG)
     Route: 042
  32. MIDAZOLAM [Concomitant]
     Active Substance: MIDAZOLAM
     Indication: Induction of anaesthesia
     Dosage: 2 MILLIGRAM
     Route: 065
  33. ROCURONIUM [Concomitant]
     Active Substance: ROCURONIUM BROMIDE
     Indication: Induction of anaesthesia
     Dosage: INDUCTION: 50 MG
     Route: 065
  34. ROCURONIUM [Concomitant]
     Active Substance: ROCURONIUM BROMIDE
     Indication: Maintenance of anaesthesia
     Dosage: 1ST HOUR: 70 MG
     Route: 065
  35. FENTANYL [Concomitant]
     Active Substance: FENTANYL
     Indication: Induction of anaesthesia
     Dosage: INDUCTION: 50 MCG
     Route: 065
  36. FENTANYL [Concomitant]
     Active Substance: FENTANYL
     Indication: Maintenance of anaesthesia
     Dosage: 1ST HOUR: 50 MG
     Route: 065
  37. LIDOCAINE HYDROCHLORIDE [Concomitant]
     Active Substance: LIDOCAINE HYDROCHLORIDE
     Indication: Analgesic therapy
     Dosage: 100 MILLIGRAM
     Route: 065
  38. ALBUMIN HUMAN [Concomitant]
     Active Substance: ALBUMIN HUMAN
     Indication: Product used for unknown indication
     Dosage: 2ND HOUR: 500 MILLILITER
     Route: 065
  39. LACTATED RINGERS SOLUTION [Concomitant]
     Active Substance: CALCIUM CHLORIDE\POTASSIUM CHLORIDE\SODIUM CHLORIDE\SODIUM LACTATE
     Indication: Product used for unknown indication
     Dosage: INDUCTION: 75 MILLILITER
     Route: 042
  40. LACTATED RINGERS SOLUTION [Concomitant]
     Active Substance: CALCIUM CHLORIDE\POTASSIUM CHLORIDE\SODIUM CHLORIDE\SODIUM LACTATE
     Dosage: 1ST HOUR: 1000 MILLILITER
     Route: 042
  41. LACTATED RINGERS SOLUTION [Concomitant]
     Active Substance: CALCIUM CHLORIDE\POTASSIUM CHLORIDE\SODIUM CHLORIDE\SODIUM LACTATE
     Dosage: 2ND HOUR: 75 MILLILITER
     Route: 042
  42. LACTATED RINGERS SOLUTION [Concomitant]
     Active Substance: CALCIUM CHLORIDE\POTASSIUM CHLORIDE\SODIUM CHLORIDE\SODIUM LACTATE
     Dosage: 3RD HOUR: 75 MILLILITER
     Route: 065
  43. LACTATED RINGERS SOLUTION [Concomitant]
     Active Substance: CALCIUM CHLORIDE\POTASSIUM CHLORIDE\SODIUM CHLORIDE\SODIUM LACTATE
     Dosage: 4TH HOUR: 75 MILLILITER
     Route: 065
  44. LACTATED RINGERS SOLUTION [Concomitant]
     Active Substance: CALCIUM CHLORIDE\POTASSIUM CHLORIDE\SODIUM CHLORIDE\SODIUM LACTATE
     Dosage: 5TH HOUR: 700 MILLILITER
     Route: 065
  45. LACTATED RINGERS SOLUTION [Concomitant]
     Active Substance: CALCIUM CHLORIDE\POTASSIUM CHLORIDE\SODIUM CHLORIDE\SODIUM LACTATE
     Dosage: 6TH HOUR: 500 MILLILITER
     Route: 065
  46. LACTATED RINGERS SOLUTION [Concomitant]
     Active Substance: CALCIUM CHLORIDE\POTASSIUM CHLORIDE\SODIUM CHLORIDE\SODIUM LACTATE
     Dosage: 7TH HOUR: 500 MILLILITER
     Route: 065
  47. LACTATED RINGERS SOLUTION [Concomitant]
     Active Substance: CALCIUM CHLORIDE\POTASSIUM CHLORIDE\SODIUM CHLORIDE\SODIUM LACTATE
     Dosage: 8TH HOUR: 500 MILLILITER (INTRA-OPERATIVE TOTAL: 3500 ML)
     Route: 065
  48. SODIUM CHLORIDE [Concomitant]
     Active Substance: SODIUM CHLORIDE
     Indication: Product used for unknown indication
     Dosage: 4TH HOUR: 500 MILLILITER
     Route: 042
  49. SODIUM CHLORIDE [Concomitant]
     Active Substance: SODIUM CHLORIDE
     Dosage: 5TH HOUR: 500 MILLILITER
     Route: 042
  50. SODIUM CHLORIDE [Concomitant]
     Active Substance: SODIUM CHLORIDE
     Dosage: 8TH HOUR: 1000 MILLILITER (INTRA-OPERATIVE TOTAL: 2000 ML)
     Route: 042

REACTIONS (2)
  - Diabetes insipidus [Recovered/Resolved]
  - Product use issue [Recovered/Resolved]
